FAERS Safety Report 9090407 (Version 1)
Quarter: 2013Q1

REPORT INFORMATION
  Report Type: Spontaneous
  Country: US (occurrence: US)
  Receive Date: 20130201
  Receipt Date: 20130201
  Transmission Date: 20140127
  Serious: No
  Sender: FDA-Public Use
  Company Number: US-009507513-1301USA014120

PATIENT
  Age: 74 Year
  Sex: Female

DRUGS (6)
  1. NASONEX [Suspect]
     Dosage: 1 SPRAY IN EACH NOSTRIL, QD
     Route: 045
  2. NASONEX [Suspect]
     Dosage: 2 SPRAYS IN EACH NOSTRIL, QD
     Route: 045
  3. PLAQUENIL [Concomitant]
  4. CELEBREX [Concomitant]
  5. ASPIRIN [Concomitant]
  6. CETIRIZINE HYDROCHLORIDE [Concomitant]

REACTIONS (2)
  - Cough [Unknown]
  - Stomatitis [Unknown]
